FAERS Safety Report 25284047 (Version 2)
Quarter: 2025Q2

REPORT INFORMATION
  Report Type: Spontaneous
  Country: US (occurrence: US)
  Receive Date: 20250508
  Receipt Date: 20250512
  Transmission Date: 20250717
  Serious: Yes (Life-Threatening, Other)
  Sender: PFIZER
  Company Number: US-PFIZER INC-MK-6033629

PATIENT
  Age: 77 Year
  Sex: Female

DRUGS (2)
  1. ENALAPRILAT [Suspect]
     Active Substance: ENALAPRILAT
     Route: 042
  2. NITROGLYCERIN [Concomitant]
     Active Substance: NITROGLYCERIN
     Route: 060

REACTIONS (2)
  - Angioedema [Recovered/Resolved]
  - Tryptase increased [Recovered/Resolved]
